FAERS Safety Report 15705380 (Version 1)
Quarter: 2018Q4

REPORT INFORMATION
  Report Type: Spontaneous
  Country: CN (occurrence: CN)
  Receive Date: 20181210
  Receipt Date: 20181210
  Transmission Date: 20190205
  Serious: Yes (Other)
  Sender: FDA-Public Use
  Company Number: CN-MYLANLABS-2018M1089454

PATIENT
  Age: 52 Year
  Sex: Female

DRUGS (1)
  1. IMATINIB. [Suspect]
     Active Substance: IMATINIB MESYLATE
     Indication: CHRONIC MYELOID LEUKAEMIA
     Route: 065
     Dates: start: 200611

REACTIONS (3)
  - Chronic myeloid leukaemia transformation [Recovering/Resolving]
  - Hypergammaglobulinaemia benign monoclonal [Recovering/Resolving]
  - Immune thrombocytopenic purpura [Recovered/Resolved]
